FAERS Safety Report 19481658 (Version 4)
Quarter: 2023Q2

REPORT INFORMATION
  Report Type: Report from Study
  Country: CO (occurrence: CO)
  Receive Date: 20210701
  Receipt Date: 20230426
  Transmission Date: 20230722
  Serious: Yes (Life-Threatening, Hospitalization, Disabling, Other)
  Sender: FDA-Public Use
  Company Number: DE-TAKEDA-DE201827393

PATIENT
  Age: 32 Year
  Sex: Male
  Weight: 81 kg

DRUGS (33)
  1. ADVATE [Suspect]
     Active Substance: ANTIHEMOPHILIC FACTOR, HUMAN RECOMBINANT
     Indication: Prophylaxis
     Dosage: UNK
     Route: 042
     Dates: start: 20150119
  2. ADVATE [Suspect]
     Active Substance: ANTIHEMOPHILIC FACTOR, HUMAN RECOMBINANT
     Indication: Prophylaxis
     Dosage: UNK
     Route: 042
     Dates: start: 20150119
  3. ADVATE [Suspect]
     Active Substance: ANTIHEMOPHILIC FACTOR, HUMAN RECOMBINANT
     Indication: Prophylaxis
     Dosage: UNK
     Route: 042
     Dates: start: 20150119
  4. ADVATE [Suspect]
     Active Substance: ANTIHEMOPHILIC FACTOR, HUMAN RECOMBINANT
     Indication: Factor VIII deficiency
     Dosage: 1500 INTERNATIONAL UNIT, 3/WEEK
     Route: 042
  5. ADVATE [Suspect]
     Active Substance: ANTIHEMOPHILIC FACTOR, HUMAN RECOMBINANT
     Indication: Factor VIII deficiency
     Dosage: 1500 INTERNATIONAL UNIT, 3/WEEK
     Route: 042
  6. ADVATE [Suspect]
     Active Substance: ANTIHEMOPHILIC FACTOR, HUMAN RECOMBINANT
     Indication: Factor VIII deficiency
     Dosage: 1500 INTERNATIONAL UNIT, 3/WEEK
     Route: 042
  7. ADVATE [Suspect]
     Active Substance: ANTIHEMOPHILIC FACTOR, HUMAN RECOMBINANT
     Dosage: 2000 INTERNATIONAL UNIT
     Route: 042
     Dates: start: 20180219
  8. ADVATE [Suspect]
     Active Substance: ANTIHEMOPHILIC FACTOR, HUMAN RECOMBINANT
     Dosage: 2000 INTERNATIONAL UNIT
     Route: 042
     Dates: start: 20180219
  9. ADVATE [Suspect]
     Active Substance: ANTIHEMOPHILIC FACTOR, HUMAN RECOMBINANT
     Dosage: 2000 INTERNATIONAL UNIT
     Route: 042
     Dates: start: 20180219
  10. ADVATE [Suspect]
     Active Substance: ANTIHEMOPHILIC FACTOR, HUMAN RECOMBINANT
     Dosage: 3500 INTERNATIONAL UNIT
     Route: 042
     Dates: start: 20180219, end: 20200219
  11. ADVATE [Suspect]
     Active Substance: ANTIHEMOPHILIC FACTOR, HUMAN RECOMBINANT
     Dosage: 3500 INTERNATIONAL UNIT
     Route: 042
     Dates: start: 20180219, end: 20200219
  12. ADVATE [Suspect]
     Active Substance: ANTIHEMOPHILIC FACTOR, HUMAN RECOMBINANT
     Dosage: 3500 INTERNATIONAL UNIT
     Route: 042
     Dates: start: 20180219, end: 20200219
  13. CLONIDINE [Concomitant]
     Active Substance: CLONIDINE
     Indication: Migraine
     Dosage: 150 MICROGRAM, BID
     Route: 065
     Dates: start: 2001, end: 20180218
  14. CLONIDINE [Concomitant]
     Active Substance: CLONIDINE
     Indication: Drug dependence
     Dosage: 150 MICROGRAM, 5 TIMES PER DAY
     Route: 065
     Dates: start: 20180219, end: 20180302
  15. CLONIDINE [Concomitant]
     Active Substance: CLONIDINE
     Dosage: 150 MICROGRAM, BID
     Route: 065
     Dates: start: 20180303, end: 20200528
  16. LEVETIRACETAM [Concomitant]
     Active Substance: LEVETIRACETAM
     Indication: Seizure
     Dosage: 100 MICROGRAM, QD
     Route: 065
     Dates: start: 201606, end: 20180704
  17. LEVETIRACETAM [Concomitant]
     Active Substance: LEVETIRACETAM
     Dosage: 500 MICROGRAM, QD
     Route: 065
     Dates: start: 20180704
  18. METHADONE [Concomitant]
     Active Substance: METHADONE HYDROCHLORIDE
     Indication: Myalgia
     Dosage: 10 MILLIGRAM, TID
     Route: 065
     Dates: start: 2010, end: 201501
  19. METHADONE [Concomitant]
     Active Substance: METHADONE HYDROCHLORIDE
     Dosage: 50 MILLIGRAM
     Route: 065
     Dates: start: 201501, end: 20180218
  20. METHADONE [Concomitant]
     Active Substance: METHADONE HYDROCHLORIDE
     Dosage: 10 MILLIGRAM, TID
     Route: 065
     Dates: start: 20180219, end: 20180220
  21. METHADONE [Concomitant]
     Active Substance: METHADONE HYDROCHLORIDE
     Dosage: 20 MILLIGRAM
     Route: 065
     Dates: start: 20180221
  22. PHENYTOIN [Concomitant]
     Active Substance: PHENYTOIN
     Indication: Seizure
     Dosage: 100 MILLIGRAM, TID
     Route: 065
     Dates: start: 2003, end: 20180704
  23. PHENYTOIN [Concomitant]
     Active Substance: PHENYTOIN
     Dosage: 125 MILLIGRAM, TID
     Route: 065
     Dates: start: 20180704
  24. SERTRALINE [Concomitant]
     Active Substance: SERTRALINE HYDROCHLORIDE
     Indication: Major depression
     Dosage: 50 MILLIGRAM, QD
     Route: 065
     Dates: start: 201501
  25. THIAMINE [Concomitant]
     Active Substance: THIAMINE
     Indication: Product used for unknown indication
     Dosage: 300 MILLIGRAM, QD
     Route: 065
     Dates: start: 2013, end: 20150731
  26. TRAMADOL [Concomitant]
     Active Substance: TRAMADOL
     Indication: Myalgia
     Dosage: 50 MILLIGRAM, TID
     Route: 065
     Dates: start: 2012, end: 20180219
  27. TRAMADOL [Concomitant]
     Active Substance: TRAMADOL
     Dosage: 20 GTT DROPS, TID
     Route: 065
     Dates: start: 20180303, end: 20190115
  28. TRAMADOL [Concomitant]
     Active Substance: TRAMADOL
     Dosage: 60 DROPS
     Route: 065
     Dates: start: 20190116
  29. CLONAZEPAM [Concomitant]
     Active Substance: CLONAZEPAM
     Indication: Major depression
     Dosage: 2 MILLIGRAM, BID
     Route: 065
     Dates: start: 2008, end: 20180218
  30. CLONAZEPAM [Concomitant]
     Active Substance: CLONAZEPAM
     Indication: Suicidal ideation
     Dosage: 2 MILLIGRAM, BID
     Route: 065
     Dates: start: 20190116
  31. LEVOMEPROMAZINE [Concomitant]
     Active Substance: LEVOMEPROMAZINE
     Indication: Major depression
     Dosage: 100 MILLIGRAM, QD
     Route: 065
     Dates: start: 2010, end: 20160218
  32. LEVOMEPROMAZINE [Concomitant]
     Active Substance: LEVOMEPROMAZINE
     Dosage: 50 MILLIGRAM, QD
     Route: 065
     Dates: start: 201604, end: 20180218
  33. LEVOMEPROMAZINE [Concomitant]
     Active Substance: LEVOMEPROMAZINE
     Dosage: 100 MILLIGRAM, QD
     Route: 065
     Dates: start: 20190116, end: 20200528

REACTIONS (3)
  - Major depression [Recovered/Resolved]
  - Suicidal ideation [Recovered/Resolved]
  - Suicide attempt [Recovered/Resolved]

NARRATIVE: CASE EVENT DATE: 20180219
